FAERS Safety Report 14129496 (Version 1)
Quarter: 2017Q4

REPORT INFORMATION
  Report Type: Spontaneous
  Country: US (occurrence: US)
  Receive Date: 20171026
  Receipt Date: 20171026
  Transmission Date: 20180321
  Serious: Yes (Hospitalization)
  Sender: FDA-Public Use
  Company Number: US-FRESENIUS MEDICAL CARE RENAL THERAPIES GROUP-FMC-1710-001210

PATIENT
  Age: 59 Year
  Sex: Female
  Weight: 104.9 kg

DRUGS (4)
  1. METOPROLOL. [Concomitant]
     Active Substance: METOPROLOL
  2. NIFEDIPINE. [Concomitant]
     Active Substance: NIFEDIPINE
  3. INSULIN [Concomitant]
     Active Substance: INSULIN NOS
  4. DELFLEX WITH DEXTROSE 1.5% LOW MAGNESIUM LOW CALCIUM [Suspect]
     Active Substance: CALCIUM CHLORIDE\DEXTROSE\MAGNESIUM CHLORIDE\SODIUM CHLORIDE\SODIUM LACTATE
     Indication: END STAGE RENAL DISEASE
     Route: 033

REACTIONS (4)
  - Blood potassium decreased [Recovered/Resolved]
  - Incorrect dose administered [Recovered/Resolved]
  - Blood pressure increased [Recovered/Resolved]
  - Fluid imbalance [Recovered/Resolved]

NARRATIVE: CASE EVENT DATE: 20170903
